FAERS Safety Report 18784339 (Version 2)
Quarter: 2021Q1

REPORT INFORMATION
  Report Type: Other
  Country: KR (occurrence: KR)
  Receive Date: 20210125
  Receipt Date: 20210311
  Transmission Date: 20210419
  Serious: Yes (Other)
  Sender: FDA-Public Use
  Company Number: KR-ROCHE-2753013

PATIENT

DRUGS (7)
  1. ALTEPLASE. [Suspect]
     Active Substance: ALTEPLASE
     Indication: RETINAL HAEMORRHAGE
     Dosage: 50 UG/0.05 ML
     Route: 050
  2. MYDRIN?P [Concomitant]
     Active Substance: PHENYLEPHRINE HYDROCHLORIDE\TROPICAMIDE
     Indication: MYDRIASIS
  3. RANIBIZUMAB. [Suspect]
     Active Substance: RANIBIZUMAB
     Indication: RETINAL HAEMORRHAGE
     Route: 050
  4. AFLIBERCEPT [Suspect]
     Active Substance: AFLIBERCEPT
     Indication: RETINAL HAEMORRHAGE
     Route: 065
  5. ALCAINE [Concomitant]
     Active Substance: PROPARACAINE HYDROCHLORIDE
  6. POTADINE [Concomitant]
  7. BEVACIZUMAB. [Suspect]
     Active Substance: BEVACIZUMAB
     Indication: RETINAL HAEMORRHAGE
     Route: 050

REACTIONS (5)
  - Vitreous haemorrhage [Unknown]
  - Intentional product use issue [Unknown]
  - Rhegmatogenous retinal detachment [Unknown]
  - Off label use [Unknown]
  - Retinal pigment epithelial tear [Unknown]
